FAERS Safety Report 13678580 (Version 2)
Quarter: 2017Q3

REPORT INFORMATION
  Report Type: Spontaneous
  Country: JP (occurrence: JP)
  Receive Date: 20170622
  Receipt Date: 20170719
  Transmission Date: 20171127
  Serious: No
  Sender: FDA-Public Use
  Company Number: JP-SA-2017SA111217

PATIENT
  Age: 50 Year
  Sex: Female

DRUGS (2)
  1. DELLEGRA [Suspect]
     Active Substance: FEXOFENADINE HYDROCHLORIDE\PSEUDOEPHEDRINE HYDROCHLORIDE
     Route: 048
     Dates: start: 20170527, end: 20170530
  2. ZETIA [Concomitant]
     Active Substance: EZETIMIBE

REACTIONS (1)
  - Dysuria [Recovered/Resolved]

NARRATIVE: CASE EVENT DATE: 20170530
